FAERS Safety Report 6971279-7 (Version None)
Quarter: 2010Q3

REPORT INFORMATION
  Report Type: 
  Country: None (occurrence: None)
  Receive Date: 20100908
  Receipt Date: 20100827
  Transmission Date: 20110219
  Serious: No
  Sender: FDA-Public Use
  Company Number: US-B.I. PHARMACEUTICALS,INC./RIDGEFIELD-2010-BP-09846BP

PATIENT
  Sex: Female

DRUGS (2)
  1. ZANTAC 150 [Suspect]
     Indication: DYSPEPSIA
     Dosage: 150 MG
     Route: 048
     Dates: start: 20100826, end: 20100826
  2. PRENATAL VITAMINS [Concomitant]
     Indication: PREGNANCY
     Route: 048

REACTIONS (4)
  - ABDOMINAL DISCOMFORT [None]
  - DECREASED APPETITE [None]
  - NAUSEA [None]
  - VOMITING [None]
